FAERS Safety Report 7243271-9 (Version None)
Quarter: 2011Q1

REPORT INFORMATION
  Report Type: 
  Country: None (occurrence: None)
  Receive Date: 20110125
  Receipt Date: 20110118
  Transmission Date: 20110831
  Serious: Yes (Life-Threatening, Hospitalization)
  Sender: FDA-Public Use
  Company Number: FR-ROCHE-754752

PATIENT
  Sex: Female

DRUGS (4)
  1. PRAXILENE [Suspect]
     Dosage: LONG TERM TREATMENT, DOSE NOT CHANGED
     Route: 048
  2. XELODA [Suspect]
     Indication: BREAST CANCER
     Route: 048
     Dates: start: 20100501, end: 20100801
  3. CIBENZOLINE SUCCINATE [Suspect]
     Dosage: DRUG REPORTED AS EXACOR
     Route: 048
     Dates: end: 20100801
  4. KARDEGIC [Suspect]
     Route: 048
     Dates: end: 20100801

REACTIONS (5)
  - HYPOKALAEMIA [None]
  - HYPONATRAEMIA [None]
  - ILEITIS [None]
  - PALMAR-PLANTAR ERYTHRODYSAESTHESIA SYNDROME [None]
  - CYTOLYTIC HEPATITIS [None]
